FAERS Safety Report 10029272 (Version 1)
Quarter: 2014Q1

REPORT INFORMATION
  Report Type: Report from Study
  Country: BR (occurrence: BR)
  Receive Date: 20140321
  Receipt Date: 20140321
  Transmission Date: 20141002
  Serious: Yes (Death)
  Sender: FDA-Public Use
  Company Number: ALCN2014BR001705

PATIENT
  Sex: Male

DRUGS (5)
  1. TRAVATAN [Suspect]
     Indication: GLAUCOMA
     Dosage: 1 DF, UNK
     Route: 047
  2. BRIMONIDINE TARTRATE [Concomitant]
     Indication: GLAUCOMA
     Dosage: 1 DF, UNK
     Route: 047
  3. HYDROCHLOROTHIAZIDE [Concomitant]
     Indication: HYPERTENSION
     Dosage: 1 DF, UNK
     Route: 048
  4. CAPTOPRIL [Concomitant]
     Indication: HYPERTENSION
     Dosage: 1 DF, UNK
     Route: 048
  5. ALPRAZOLAM [Concomitant]
     Indication: ANXIOLYTIC THERAPY
     Dosage: 1 DF, UNK
     Route: 048

REACTIONS (4)
  - Myocardial infarction [Fatal]
  - Hepatic neoplasm [Fatal]
  - Abdominal pain upper [Fatal]
  - Headache [Fatal]
